FAERS Safety Report 9993360 (Version 2)
Quarter: 2014Q1

REPORT INFORMATION
  Report Type: Report from Study
  Country: US (occurrence: US)
  Receive Date: 20140310
  Receipt Date: 20140321
  Transmission Date: 20141002
  Serious: Yes (Death, Life-Threatening, Hospitalization)
  Sender: FDA-Public Use
  Company Number: US-ABBVIE-14P-163-1210542-00

PATIENT
  Age: 62 Year
  Sex: Male
  Weight: 87.1 kg

DRUGS (22)
  1. RIBAVIRIN [Suspect]
     Indication: PRODUCT USED FOR UNKNOWN INDICATION
     Route: 048
     Dates: start: 20131211, end: 20140128
  2. SOF/LDV (SOFOSBUVIR, LEDIPASVIR) [Suspect]
     Indication: PRODUCT USED FOR UNKNOWN INDICATION
     Route: 048
     Dates: start: 20131211
  3. SPIRONOLACTONE [Concomitant]
     Indication: ASCITES
     Route: 048
     Dates: start: 20140124
  4. SPIRONOLACTONE [Concomitant]
     Indication: ABDOMINAL DISTENSION
  5. MICROFUNGIN [Concomitant]
     Indication: LIVER ABSCESS
     Route: 042
     Dates: start: 20140129
  6. MICROFUNGIN [Concomitant]
     Indication: SEPSIS
  7. LISINOPRIL/HCTZ [Concomitant]
     Indication: HYPERTENSION
     Route: 048
     Dates: start: 200805
  8. OXYCODONE [Concomitant]
     Indication: CERVICAL RADICULOPATHY
     Route: 048
     Dates: start: 201003
  9. ZOSYN [Concomitant]
     Indication: LIVER ABSCESS
     Route: 042
     Dates: start: 20140129, end: 20140131
  10. ZOSYN [Concomitant]
     Indication: SEPSIS
  11. ALBUMIN [Concomitant]
     Indication: HYPOALBUMINAEMIA
     Route: 042
     Dates: start: 20140129, end: 20140201
  12. ASPIRIN [Concomitant]
     Indication: HYPERTENSION
     Route: 048
     Dates: start: 200805
  13. BLOOD CELLS, PACKED HUMAN [Concomitant]
     Indication: HAEMOLYTIC ANAEMIA
     Route: 042
     Dates: start: 20140129, end: 20140129
  14. BLOOD CELLS, PACKED HUMAN [Concomitant]
     Indication: MELAENA
  15. FUROSEMIDE [Concomitant]
     Indication: ASCITES
     Route: 048
     Dates: start: 20140124
  16. FUROSEMIDE [Concomitant]
     Indication: ABDOMINAL DISTENSION
  17. MAGNESIUM HYDROXIDE [Concomitant]
     Indication: CONSTIPATION
     Route: 048
     Dates: start: 20140124
  18. FRESH FROZEN PLASMA [Concomitant]
     Indication: MELAENA
     Route: 042
     Dates: start: 20140129, end: 20140130
  19. METOPROLOL [Concomitant]
     Indication: HYPERTENSION
     Route: 048
     Dates: start: 200805
  20. RANITIDINE [Concomitant]
     Indication: GASTROOESOPHAGEAL REFLUX PROPHYLAXIS
     Route: 048
     Dates: start: 20131204
  21. TACROLIMUS [Concomitant]
     Indication: IMMUNOSUPPRESSION
     Route: 048
     Dates: start: 200805
  22. MAGNESIUM OXIDE [Concomitant]
     Indication: SUPPLEMENTATION THERAPY
     Route: 048
     Dates: start: 200805

REACTIONS (4)
  - Splenic vein thrombosis [Fatal]
  - Liver abscess [Fatal]
  - Sepsis [Fatal]
  - Haemolytic anaemia [Not Recovered/Not Resolved]
